FAERS Safety Report 5145955-5 (Version None)
Quarter: 2006Q4

REPORT INFORMATION
  Report Type: 
  Country: None (occurrence: None)
  Receive Date: 20061108
  Receipt Date: 20061031
  Transmission Date: 20070319
  Serious: Yes (Life-Threatening, Hospitalization, Other)
  Sender: FDA-Public Use
  Company Number: US-JNJFOC-20060307400

PATIENT
  Sex: Female
  Weight: 63.96 kg

DRUGS (3)
  1. ORTHO EVRA [Suspect]
     Indication: CONTRACEPTION
     Dates: start: 20051001
  2. MICRONOR [Suspect]
     Indication: CONTRACEPTION
  3. PERCOCET [Concomitant]
     Dosage: AS NECESSARY

REACTIONS (21)
  - BALANCE DISORDER [None]
  - DRUG EFFECT DECREASED [None]
  - EYE HAEMORRHAGE [None]
  - FUNDOSCOPY ABNORMAL [None]
  - GRAND MAL CONVULSION [None]
  - HAEMATOCRIT DECREASED [None]
  - HAEMOGLOBIN DECREASED [None]
  - HEART RATE DECREASED [None]
  - HYPERCOAGULATION [None]
  - INADEQUATE ANALGESIA [None]
  - INTERNATIONAL NORMALISED RATIO INCREASED [None]
  - MIGRAINE [None]
  - NAUSEA [None]
  - PAPILLOEDEMA [None]
  - PARAESTHESIA [None]
  - PHOTOPHOBIA [None]
  - RASH [None]
  - RESPIRATORY RATE INCREASED [None]
  - RETCHING [None]
  - SUPERIOR SAGITTAL SINUS THROMBOSIS [None]
  - TRANSVERSE SINUS THROMBOSIS [None]
